FAERS Safety Report 8430507-1 (Version None)
Quarter: 2012Q2

REPORT INFORMATION
  Report Type: 
  Country: None (occurrence: None)
  Receive Date: 20120612
  Receipt Date: 20120601
  Transmission Date: 20120825
  Serious: Yes (Hospitalization)
  Sender: FDA-Public Use
  Company Number: CA-JNJFOC-20120203932

PATIENT
  Sex: Female
  Weight: 68 kg

DRUGS (6)
  1. REMICADE [Suspect]
     Route: 042
     Dates: start: 20111229
  2. REMICADE [Suspect]
     Dosage: RE-LOADING DOSE Q2, THEN 6 AND THEN 8 WEEKS
     Route: 042
     Dates: start: 20120601, end: 20120601
  3. REMICADE [Suspect]
     Indication: CROHN'S DISEASE
     Route: 042
     Dates: end: 20120516
  4. REMICADE [Suspect]
     Route: 042
     Dates: start: 20110627
  5. TINZAPARIN [Concomitant]
     Route: 065
  6. ALL OTHER THERAPEUTICS [Concomitant]
     Route: 065

REACTIONS (9)
  - COLECTOMY [None]
  - CHEST PAIN [None]
  - INFUSION RELATED REACTION [None]
  - ASTHENIA [None]
  - MYALGIA [None]
  - BACK PAIN [None]
  - VOMITING [None]
  - NAUSEA [None]
  - ABDOMINAL PAIN [None]
